FAERS Safety Report 5730259-X (Version None)
Quarter: 2008Q2

REPORT INFORMATION
  Report Type: 
  Country: None (occurrence: None)
  Receive Date: 20080505
  Receipt Date: 20080505
  Transmission Date: 20081010
  Serious: No
  Sender: FDA-Public Use
  Company Number: None

PATIENT
  Age: 59 Year
  Sex: Female
  Weight: 93.441 kg

DRUGS (1)
  1. DIGITEK 0.25MG BERTEK [Suspect]
     Indication: ATRIAL FIBRILLATION
     Dosage: 0.25MG ONCE DAILY; ?START 1999
     Dates: start: 19990128, end: 20080423

REACTIONS (2)
  - DIZZINESS [None]
  - HEART RATE DECREASED [None]
